FAERS Safety Report 6963814-X (Version None)
Quarter: 2010Q3

REPORT INFORMATION
  Report Type: 
  Country: None (occurrence: None)
  Receive Date: 20100830
  Receipt Date: 20100813
  Transmission Date: 20110219
  Serious: Yes (Life-Threatening, Hospitalization)
  Sender: FDA-Public Use
  Company Number: DSA_13752_2010

PATIENT
  Age: 75 Year
  Sex: Female

DRUGS (4)
  1. ENALAPRIL MALEATE [Suspect]
     Indication: ESSENTIAL HYPERTENSION
     Dosage: (10 MG QD)
  2. REMERON [Suspect]
     Indication: DEPRESSION
     Dosage: (30 MG QD ORAL)
     Route: 048
     Dates: end: 20100616
  3. ASPIRIN [Suspect]
     Indication: ANGIOPATHY
     Dosage: (100 MG QD ORAL)
     Route: 048
     Dates: start: 20071001, end: 20100616
  4. ZOLPIDEM TARTRATE [Concomitant]

REACTIONS (6)
  - DUODENAL ULCER HAEMORRHAGE [None]
  - DUODENAL ULCER PERFORATION [None]
  - HAEMORRHAGIC ANAEMIA [None]
  - PERIPHERAL ISCHAEMIA [None]
  - POST PROCEDURAL COMPLICATION [None]
  - SHOCK HAEMORRHAGIC [None]
